APPROVED DRUG PRODUCT: TEMAZEPAM
Active Ingredient: TEMAZEPAM
Strength: 7.5MG
Dosage Form/Route: CAPSULE;ORAL
Application: A217875 | Product #001 | TE Code: AB
Applicant: ALKEM LABORATORIES LTD
Approved: Aug 24, 2023 | RLD: No | RS: No | Type: RX